FAERS Safety Report 5826801-0 (Version None)
Quarter: 2008Q3

REPORT INFORMATION
  Report Type: 
  Country: None (occurrence: None)
  Receive Date: 20080728
  Receipt Date: 20080728
  Transmission Date: 20090109
  Serious: Yes (Other)
  Sender: FDA-Public Use
  Company Number: None

PATIENT
  Age: 87 Year
  Sex: Female
  Weight: 63.5036 kg

DRUGS (2)
  1. ARIMIDEX [Suspect]
     Indication: PROPHYLAXIS
     Dosage: ONE DAILY PO
     Route: 048
     Dates: start: 20080526, end: 20080618
  2. ARIMIDEX [Suspect]
     Indication: RECURRENT CANCER
     Dosage: ONE DAILY PO
     Route: 048
     Dates: start: 20080526, end: 20080618

REACTIONS (5)
  - ANXIETY [None]
  - FEELING ABNORMAL [None]
  - ILL-DEFINED DISORDER [None]
  - MENTAL DISORDER [None]
  - NERVOUS SYSTEM DISORDER [None]
